FAERS Safety Report 9314467 (Version 1)
Quarter: 2013Q2

REPORT INFORMATION
  Report Type: Spontaneous
  Country: US (occurrence: US)
  Receive Date: 20130529
  Receipt Date: 20130529
  Transmission Date: 20140414
  Serious: No
  Sender: FDA-Public Use
  Company Number: US-PFIZER INC-2013160151

PATIENT
  Age: 81 Year
  Sex: Female
  Weight: 69.39 kg

DRUGS (2)
  1. ATORVASTATIN CALCIUM [Suspect]
     Indication: BLOOD CHOLESTEROL INCREASED
     Dosage: 10 MG, 1X/DAY
     Route: 048
     Dates: start: 201303
  2. BONIVA [Concomitant]
     Indication: OSTEOPOROSIS
     Dosage: UNK, ONCE A MONTH

REACTIONS (2)
  - Blood glucose increased [Unknown]
  - Malaise [Unknown]
